FAERS Safety Report 6820410-2 (Version None)
Quarter: 2010Q3

REPORT INFORMATION
  Report Type: 
  Country: None (occurrence: None)
  Receive Date: 20100707
  Receipt Date: 20100622
  Transmission Date: 20110219
  Serious: No
  Sender: FDA-Public Use
  Company Number: US-TEVA-239762USA

PATIENT

DRUGS (1)
  1. COPAXONE [Suspect]
     Route: 058
     Dates: start: 20040101

REACTIONS (3)
  - ARTHRALGIA [None]
  - OEDEMA [None]
  - WHITE BLOOD CELL COUNT INCREASED [None]
